FAERS Safety Report 7341042-6 (Version None)
Quarter: 2011Q1

REPORT INFORMATION
  Report Type: 
  Country: None (occurrence: None)
  Receive Date: 20110309
  Receipt Date: 20110228
  Transmission Date: 20110831
  Serious: Yes (Death, Other)
  Sender: FDA-Public Use
  Company Number: US-ACTELION-A-NJ2010-34780

PATIENT

DRUGS (22)
  1. TRACLEER [Suspect]
     Indication: PULMONARY ARTERIAL HYPERTENSION
     Dosage: UNK MG, UNK
     Route: 048
     Dates: start: 20100317, end: 20110101
  2. NEXIUM [Concomitant]
  3. ALLOPURINOL [Concomitant]
  4. ASMANEX TWISTHALER [Concomitant]
  5. PAROXETINE [Concomitant]
  6. HUMULIN 70/30 [Concomitant]
  7. SIMVASTATIN [Concomitant]
  8. TRACLEER [Suspect]
     Dosage: 62.5 MG, BID
     Route: 048
     Dates: start: 20100223, end: 20100314
  9. MELOXICAM [Concomitant]
  10. PLAVIX [Concomitant]
  11. VENTOLIN HFA [Concomitant]
  12. PREDNISONE [Concomitant]
  13. WARFARIN SODIUM [Concomitant]
  14. CLONAZEPAM [Concomitant]
  15. COREG [Concomitant]
  16. FOSAMAX PLUS D [Concomitant]
  17. GLIMEPIRIDE [Concomitant]
  18. FUROSEMIDE [Concomitant]
  19. OMEPRAZOLE [Concomitant]
  20. SPIRIVA [Concomitant]
  21. ASA [Concomitant]
  22. ISOSORBIDE DINITRATE [Concomitant]

REACTIONS (4)
  - DYSPNOEA [None]
  - OEDEMA [None]
  - CHEST DISCOMFORT [None]
  - SMALL CELL LUNG CANCER STAGE UNSPECIFIED [None]
